FAERS Safety Report 5799222-7 (Version None)
Quarter: 2008Q3

REPORT INFORMATION
  Report Type: 
  Country: None (occurrence: None)
  Receive Date: 20080702
  Receipt Date: 20080625
  Transmission Date: 20090109
  Serious: Yes (Other)
  Sender: FDA-Public Use
  Company Number: US-PFIZER INC-2008041763

PATIENT
  Sex: Female
  Weight: 74.545 kg

DRUGS (6)
  1. COLESTID [Suspect]
     Indication: BLOOD CHOLESTEROL INCREASED
     Dosage: TEXT:4 DOSE FORM
     Route: 048
  2. COZAAR [Concomitant]
  3. INSULIN [Concomitant]
     Indication: DIABETES MELLITUS
  4. LANTUS [Concomitant]
     Indication: DIABETES MELLITUS
  5. LEVOTHYROXINE SODIUM [Concomitant]
  6. DILTIAZEM HCL [Concomitant]
     Indication: HYPERTENSION

REACTIONS (1)
  - SPINAL CORD COMPRESSION [None]
